FAERS Safety Report 11032085 (Version 1)
Quarter: 2015Q2

REPORT INFORMATION
  Report Type: Spontaneous
  Country: VE (occurrence: VE)
  Receive Date: 20150415
  Receipt Date: 20150415
  Transmission Date: 20150821
  Serious: Yes (Other)
  Sender: FDA-Public Use
  Company Number: VE-JNJFOC-20150403893

PATIENT
  Sex: Female

DRUGS (1)
  1. RISPERDAL [Suspect]
     Active Substance: RISPERIDONE
     Indication: BIPOLAR II DISORDER
     Route: 048
     Dates: start: 201108, end: 20120521

REACTIONS (8)
  - Endocrine disorder [Unknown]
  - Chvostek^s sign [Unknown]
  - Pituitary tumour [Unknown]
  - Carpal tunnel syndrome [Unknown]
  - Paraesthesia [Unknown]
  - Trousseau^s sign [Unknown]
  - Menorrhagia [Unknown]
  - Muscle spasms [Unknown]
